FAERS Safety Report 8298287-0 (Version None)
Quarter: 2012Q2

REPORT INFORMATION
  Report Type: 
  Country: None (occurrence: None)
  Receive Date: 20120419
  Receipt Date: 20120112
  Transmission Date: 20120825
  Serious: Yes (Other)
  Sender: FDA-Public Use
  Company Number: US-BRISTOL-MYERS SQUIBB COMPANY-16349847

PATIENT
  Sex: Female

DRUGS (2)
  1. DEXAMETHASONE [Suspect]
     Dosage: 1 DF = 8 UNITS NOS 4MG TWICE A DAY
  2. YERVOY [Suspect]

REACTIONS (1)
  - NEOPLASM MALIGNANT [None]
